FAERS Safety Report 10700373 (Version 2)
Quarter: 2015Q1

REPORT INFORMATION
  Report Type: Spontaneous
  Country: US (occurrence: US)
  Receive Date: 20150109
  Receipt Date: 20150327
  Transmission Date: 20150721
  Serious: Yes (Other)
  Sender: FDA-Public Use
  Company Number: US-BAYER-2015-002665

PATIENT
  Age: 23 Year
  Sex: Female
  Weight: 70.2 kg

DRUGS (2)
  1. MIRENA [Suspect]
     Active Substance: LEVONORGESTREL
     Dosage: 20 MCG/24HR, CONT
     Route: 015
     Dates: start: 201404
  2. MIRENA [Suspect]
     Active Substance: LEVONORGESTREL
     Dosage: 20 MCG/24HR, CONT
     Route: 015
     Dates: start: 20150107

REACTIONS (5)
  - Uterine polyp [None]
  - Abdominal pain upper [None]
  - Device dislocation [None]
  - Menometrorrhagia [None]
  - Vaginal odour [None]

NARRATIVE: CASE EVENT DATE: 20150107
